FAERS Safety Report 21503305 (Version 2)
Quarter: 2022Q4

REPORT INFORMATION
  Report Type: Spontaneous
  Country: CY (occurrence: CY)
  Receive Date: 20221025
  Receipt Date: 20221102
  Transmission Date: 20230113
  Serious: Yes (Other)
  Sender: FDA-Public Use
  Company Number: CY-PFIZER INC-PV202200088394

PATIENT
  Age: 37 Year
  Sex: Male
  Weight: 90 kg

DRUGS (2)
  1. INFLIXIMAB [Suspect]
     Active Substance: INFLIXIMAB
     Indication: Ankylosing spondylitis
     Dosage: UNK
     Route: 042
     Dates: start: 20210406, end: 20220809
  2. INFLIXIMAB [Suspect]
     Active Substance: INFLIXIMAB
     Indication: Crohn^s disease

REACTIONS (3)
  - Hypoaesthesia [Not Recovered/Not Resolved]
  - Hypoaesthesia [Not Recovered/Not Resolved]
  - Demyelinating polyneuropathy [Not Recovered/Not Resolved]

NARRATIVE: CASE EVENT DATE: 20210825
